FAERS Safety Report 4841455-8 (Version None)
Quarter: 2005Q4

REPORT INFORMATION
  Report Type: 
  Country: None (occurrence: None)
  Receive Date: 20051130
  Receipt Date: 20051124
  Transmission Date: 20060501
  Serious: Yes (Death, Life-Threatening, Hospitalization, Disabling)
  Sender: FDA-Public Use
  Company Number: GB-BOEHRINGER INGELHEIM PHARMACEUTICALS, INC.-2005-UK-02446UK

PATIENT
  Age: 32 Year
  Sex: Male

DRUGS (4)
  1. VIRAMUNE TABLETS (00015/0215/A) [Suspect]
     Route: 048
     Dates: start: 20050927, end: 20051017
  2. ZERIT [Concomitant]
     Route: 048
     Dates: end: 20051017
  3. VIREAD [Concomitant]
     Route: 048
     Dates: end: 20051017
  4. SUSTIVA [Concomitant]
     Route: 065

REACTIONS (2)
  - STEVENS-JOHNSON SYNDROME [None]
  - TOXIC EPIDERMAL NECROLYSIS [None]
